FAERS Safety Report 7897852-X (Version None)
Quarter: 2011Q4

REPORT INFORMATION
  Report Type: 
  Country: None (occurrence: None)
  Receive Date: 20111103
  Receipt Date: 20111024
  Transmission Date: 20120403
  Serious: Yes (Death)
  Sender: FDA-Public Use
  Company Number: ADR-2011-11421

PATIENT
  Age: 73 Year
  Sex: Male

DRUGS (5)
  1. BACLOFEN INTRATHECAL (BACLOFEN INJECTION)1,250 MCG/ ML [Suspect]
     Indication: BACK PAIN
     Dosage: 91.8 MCG, DAILY, INTRATH.
     Route: 037
  2. BACLOFEN INTRATHECAL (BACLOFEN INJECTION)1,250 MCG/ ML [Suspect]
     Indication: PAIN
     Dosage: 91.8 MCG, DAILY, INTRATH.
     Route: 037
  3. FENTANYL-100 [Concomitant]
  4. DROPERIDOL [Concomitant]
  5. DILAUDID [Concomitant]

REACTIONS (1)
  - DEATH [None]
